FAERS Safety Report 18058836 (Version 1)
Quarter: 2020Q3

REPORT INFORMATION
  Report Type: Spontaneous
  Country: US (occurrence: US)
  Receive Date: 20200723
  Receipt Date: 20200723
  Transmission Date: 20201103
  Serious: No
  Sender: FDA-Public Use
  Company Number: US-BIOFRONTERA-000687

PATIENT
  Sex: Female

DRUGS (2)
  1. MINOCYCLINE [Concomitant]
     Active Substance: MINOCYCLINE HYDROCHLORIDE
     Indication: ACNE
  2. AMELUZ [Suspect]
     Active Substance: AMINOLEVULINIC ACID HYDROCHLORIDE
     Indication: ACTINIC KERATOSIS
     Route: 061
     Dates: start: 20200627, end: 20200627

REACTIONS (4)
  - Application site erythema [Recovering/Resolving]
  - Off label use [Recovered/Resolved]
  - Application site pain [Recovering/Resolving]
  - Application site pustules [Recovering/Resolving]

NARRATIVE: CASE EVENT DATE: 20200627
